FAERS Safety Report 21094184 (Version 2)
Quarter: 2022Q3

REPORT INFORMATION
  Report Type: Other
  Country: US (occurrence: None)
  Receive Date: 20220718
  Receipt Date: 20220803
  Transmission Date: 20221026
  Serious: Yes (Other)
  Sender: FDA-Public Use
  Company Number: US-ROCHE-3134439

PATIENT
  Sex: Female

DRUGS (15)
  1. OCREVUS [Suspect]
     Active Substance: OCRELIZUMAB
     Indication: Relapsing multiple sclerosis
     Route: 065
  2. TECFIDERA [Suspect]
     Active Substance: DIMETHYL FUMARATE
     Indication: Product used for unknown indication
     Route: 065
  3. REBIF [Suspect]
     Active Substance: INTERFERON BETA-1A
     Indication: Product used for unknown indication
     Route: 065
  4. ALBUTEROL [Concomitant]
     Active Substance: ALBUTEROL
  5. AMITRIPTYLINE [Concomitant]
     Active Substance: AMITRIPTYLINE
  6. CHOLESTYRAMINE [Concomitant]
     Active Substance: CHOLESTYRAMINE
  7. CYANOCOBALAMIN [Concomitant]
     Active Substance: CYANOCOBALAMIN
  8. DICYCLOMINE [Concomitant]
     Active Substance: DICYCLOMINE HYDROCHLORIDE
  9. HYDROXYZINE [Concomitant]
     Active Substance: HYDROXYZINE HYDROCHLORIDE
  10. LEVOTHYROXINE [Concomitant]
     Active Substance: LEVOTHYROXINE
  11. MECLIZINE [Concomitant]
     Active Substance: MECLIZINE HYDROCHLORIDE
  12. MONTELUKAST SODIUM [Concomitant]
     Active Substance: MONTELUKAST SODIUM
  13. ONDANSETRON [Concomitant]
     Active Substance: ONDANSETRON
  14. PANTOPRAZOLE [Concomitant]
     Active Substance: PANTOPRAZOLE
  15. RIZATRIPTAN [Concomitant]
     Active Substance: RIZATRIPTAN

REACTIONS (2)
  - Multiple sclerosis [Unknown]
  - COVID-19 [Unknown]
